FAERS Safety Report 18591033 (Version 3)
Quarter: 2020Q4

REPORT INFORMATION
  Report Type: Spontaneous
  Country: HU (occurrence: HU)
  Receive Date: 20201208
  Receipt Date: 20201224
  Transmission Date: 20210114
  Serious: Yes (Disabling, Other)
  Sender: FDA-Public Use
  Company Number: HU-AMGEN-HUNSP2020195753

PATIENT
  Age: 77 Year
  Sex: Male
  Weight: 85 kg

DRUGS (11)
  1. CLEXAN [Concomitant]
     Active Substance: ENOXAPARIN SODIUM
     Indication: ANTICOAGULANT THERAPY
  2. OSPORIL [Suspect]
     Active Substance: ZOLEDRONIC ACID
     Dosage: UNK UNK, Q4WK
     Route: 065
     Dates: start: 2019
  3. ELIGARD [Suspect]
     Active Substance: LEUPROLIDE ACETATE
     Indication: PROSTATE CANCER
     Dosage: UNK UNK, Q3WK
     Route: 065
  4. XGEVA [Suspect]
     Active Substance: DENOSUMAB
     Indication: METASTASES TO BONE
     Dosage: UNK UNK, Q3WK
     Route: 065
  5. VITAMIN C [Concomitant]
     Active Substance: ASCORBIC ACID
  6. AVASTIN [Suspect]
     Active Substance: BEVACIZUMAB
     Dosage: UNK, Q3WK
     Route: 042
     Dates: start: 2016, end: 2019
  7. ELIGARD [Suspect]
     Active Substance: LEUPROLIDE ACETATE
     Dosage: UNK UNK, Q4WK
     Route: 065
     Dates: start: 2019
  8. RUTASCORBIN [Concomitant]
  9. OSPORIL [Suspect]
     Active Substance: ZOLEDRONIC ACID
     Indication: PROSTATE CANCER
     Dosage: UNK UNK, Q3WK
     Route: 065
  10. AVASTIN [Suspect]
     Active Substance: BEVACIZUMAB
     Indication: NON-SMALL CELL LUNG CANCER
     Dosage: UNK, Q4WK
     Route: 042
     Dates: start: 2019
  11. XGEVA [Suspect]
     Active Substance: DENOSUMAB
     Dosage: UNK UNK, Q4WK
     Route: 065
     Dates: start: 2019

REACTIONS (10)
  - Spinal deformity [Not Recovered/Not Resolved]
  - Prostatic disorder [Not Recovered/Not Resolved]
  - Intentional product misuse [Unknown]
  - Metastases to lung [Not Recovered/Not Resolved]
  - Metastases to bone [Not Recovered/Not Resolved]
  - Oncocytoma [Not Recovered/Not Resolved]
  - Cardiac disorder [Not Recovered/Not Resolved]
  - Off label use [Unknown]
  - Muscular weakness [Not Recovered/Not Resolved]
  - Fatigue [Not Recovered/Not Resolved]
